FAERS Safety Report 4688182-8 (Version None)
Quarter: 2005Q2

REPORT INFORMATION
  Report Type: 
  Country: None (occurrence: None)
  Receive Date: 20050609
  Receipt Date: 20050412
  Transmission Date: 20051028
  Serious: No
  Sender: FDA-Public Use
  Company Number: D-05-014

PATIENT
  Age: 23 Year
  Sex: Female

DRUGS (2)
  1. CHLORPROMAZINE HYDROCHLORIDE 100 MG; USL [Suspect]
     Indication: DIABETES MELLITUS
     Dosage: 100 MG QD PO
     Route: 048
     Dates: start: 20050302, end: 20050302
  2. CHLORPROMAZINE [Suspect]
     Indication: DIABETES MELLITUS
     Dosage: 100 MG  PO
     Route: 048

REACTIONS (3)
  - DRUG DISPENSING ERROR [None]
  - NAUSEA [None]
  - SOMNOLENCE [None]
